FAERS Safety Report 8512056-5 (Version None)
Quarter: 2012Q3

REPORT INFORMATION
  Report Type: 
  Country: None (occurrence: None)
  Receive Date: 20120716
  Receipt Date: 20120714
  Transmission Date: 20120928
  Serious: No
  Sender: FDA-Public Use
  Company Number: US-PFIZER INC-2012169728

PATIENT
  Age: 7 Month
  Sex: Male
  Weight: 8.163 kg

DRUGS (1)
  1. PEDIATRIC ADVIL [Suspect]
     Indication: PYREXIA
     Dosage: UNK, 1X/DAY
     Route: 048
     Dates: start: 20120712, end: 20120713

REACTIONS (1)
  - RASH [None]
